FAERS Safety Report 16740858 (Version 1)
Quarter: 2019Q3

REPORT INFORMATION
  Report Type: Spontaneous
  Country: JP (occurrence: JP)
  Receive Date: 20190826
  Receipt Date: 20190826
  Transmission Date: 20191005
  Serious: Yes (Hospitalization)
  Sender: FDA-Public Use
  Company Number: JP-DSJP-DSJ-2019-132336

PATIENT

DRUGS (2)
  1. LIXIANA TABLETS [Suspect]
     Active Substance: EDOXABAN TOSYLATE
     Indication: VENOUS THROMBOSIS LIMB
     Dosage: 60MG/DAY
     Route: 065
  2. ANTIBIOTIC PREPARATIONS ACTING MAINLY ON GRAM-POSITIVE BACTERIA [Suspect]
     Active Substance: UNSPECIFIED INGREDIENT
     Indication: THROMBOPHLEBITIS
     Dosage: UNK
     Route: 065

REACTIONS (2)
  - Occult blood [Unknown]
  - Colitis ulcerative [Recovering/Resolving]
